FAERS Safety Report 4887610-2 (Version None)
Quarter: 2006Q1

REPORT INFORMATION
  Report Type: 
  Country: None (occurrence: None)
  Receive Date: 20060119
  Receipt Date: 20060119
  Transmission Date: 20060701
  Serious: Yes (Hospitalization, Other)
  Sender: FDA-Public Use
  Company Number: None

PATIENT
  Age: 75 Year
  Sex: Male
  Weight: 72.5755 kg

DRUGS (1)
  1. TERAZOSIN [Suspect]
     Dosage: 5 MG PO  Q HS
     Route: 048

REACTIONS (4)
  - BRADYCARDIA [None]
  - DEHYDRATION [None]
  - INCORRECT DOSE ADMINISTERED [None]
  - SYNCOPE [None]
